FAERS Safety Report 6358249-7 (Version None)
Quarter: 2009Q3

REPORT INFORMATION
  Report Type: 
  Country: None (occurrence: None)
  Receive Date: 20090911
  Receipt Date: 20090831
  Transmission Date: 20100115
  Serious: Yes (Death, Other)
  Sender: FDA-Public Use
  Company Number: 2009AP003527

PATIENT
  Age: 37 Year
  Sex: Male

DRUGS (3)
  1. FLUOXETINE HCL [Suspect]
  2. AMPHETAMINE SULFATE [Suspect]
  3. METHAMPHETAMINE HYDROCHLORIDE [Suspect]

REACTIONS (8)
  - CARDIOMYOPATHY [None]
  - CAROTID ARTERIOSCLEROSIS [None]
  - CORONARY ARTERY DISEASE [None]
  - DRUG TOXICITY [None]
  - HEPATITIS C [None]
  - LEFT VENTRICULAR HYPERTROPHY [None]
  - MYOCARDIAL ISCHAEMIA [None]
  - SUDDEN DEATH [None]
